FAERS Safety Report 10935104 (Version 2)
Quarter: 2015Q1

REPORT INFORMATION
  Report Type: Spontaneous
  Country: PK (occurrence: PK)
  Receive Date: 20150320
  Receipt Date: 20150331
  Transmission Date: 20150721
  Serious: Yes (Death, Other)
  Sender: FDA-Public Use
  Company Number: PK-GILEAD-2015-0143293

PATIENT
  Age: 45 Year
  Sex: Female
  Weight: 83 kg

DRUGS (2)
  1. XOLOX                              /00816701/ [Suspect]
     Active Substance: RIBAVIRIN
     Indication: HEPATITIS C
     Dosage: 1200 MG, QD
     Route: 048
     Dates: start: 20140906, end: 20141002
  2. SOVALDI [Suspect]
     Active Substance: SOFOSBUVIR
     Indication: HEPATITIS C
     Dosage: 400 MG, QD
     Route: 048
     Dates: start: 20140906, end: 20141002

REACTIONS (3)
  - Hepatic cirrhosis [Not Recovered/Not Resolved]
  - Hepatic encephalopathy [Fatal]
  - Liver injury [Not Recovered/Not Resolved]

NARRATIVE: CASE EVENT DATE: 20141003
